FAERS Safety Report 19560030 (Version 1)
Quarter: 2021Q3

REPORT INFORMATION
  Report Type: Spontaneous
  Country: US (occurrence: US)
  Receive Date: 20210714
  Receipt Date: 20210714
  Transmission Date: 20211014
  Serious: No
  Sender: FDA-Public Use
  Company Number: US-SK LIFE SCIENCE, INC-SKPVG-2020-000081

PATIENT

DRUGS (5)
  1. XCOPRI [Suspect]
     Active Substance: CENOBAMATE
     Indication: GENERALISED TONIC-CLONIC SEIZURE
     Dosage: 12.5 MILLIGRAM, ONCE IN THE MORNING
     Route: 048
     Dates: start: 20200706, end: 20200719
  2. XCOPRI [Suspect]
     Active Substance: CENOBAMATE
     Indication: FOCAL DYSCOGNITIVE SEIZURES
     Dosage: 25 MILLIGRAM, QD
     Route: 048
     Dates: start: 20200720
  3. VIMPAT [Suspect]
     Active Substance: LACOSAMIDE
     Indication: PRODUCT USED FOR UNKNOWN INDICATION
     Dosage: UNK,  BEING TAPERED OFF
     Route: 065
  4. XCOPRI [Suspect]
     Active Substance: CENOBAMATE
     Dosage: 200 MILLIGRAM, QHS, 3 WEEKS AGO
     Route: 048
     Dates: start: 202011
  5. LAMICTAL [Suspect]
     Active Substance: LAMOTRIGINE
     Indication: PRODUCT USED FOR UNKNOWN INDICATION
     Dosage: UNK,
     Route: 065

REACTIONS (4)
  - Seizure [Recovered/Resolved]
  - Lethargy [Recovered/Resolved]
  - Fatigue [Recovered/Resolved]
  - Somnolence [Recovered/Resolved]

NARRATIVE: CASE EVENT DATE: 2020
